FAERS Safety Report 6698990-X (Version None)
Quarter: 2010Q2

REPORT INFORMATION
  Report Type: 
  Country: None (occurrence: None)
  Receive Date: 20100427
  Receipt Date: 20090219
  Transmission Date: 20101027
  Serious: Yes (Other)
  Sender: FDA-Public Use
  Company Number: US-BAYER-200829324NA

PATIENT
  Sex: Male

DRUGS (28)
  1. MAGNEVIST [Suspect]
     Indication: NUCLEAR MAGNETIC RESONANCE IMAGING
     Route: 042
     Dates: start: 20050224, end: 20050224
  2. MAGNEVIST [Suspect]
     Dates: start: 20070615, end: 20070615
  3. OMNISCAN [Suspect]
     Indication: NUCLEAR MAGNETIC RESONANCE IMAGING
  4. OPTIMARK [Suspect]
     Indication: NUCLEAR MAGNETIC RESONANCE IMAGING
  5. MULTIHANCE [Suspect]
     Indication: NUCLEAR MAGNETIC RESONANCE IMAGING
  6. PROHANCE [Suspect]
     Indication: NUCLEAR MAGNETIC RESONANCE IMAGING
  7. UNSPECIFIED GADOLINIUM CONTRAST [Suspect]
     Indication: NUCLEAR MAGNETIC RESONANCE IMAGING ABDOMINAL
     Route: 042
     Dates: start: 20041217, end: 20041217
  8. LAMUVUDINE [Concomitant]
  9. LEVAQUIN [Concomitant]
  10. ARANESP [Concomitant]
  11. VALCYTE [Concomitant]
  12. ACTIGALL [Concomitant]
  13. NEURONTIN [Concomitant]
  14. PROTONIX [Concomitant]
  15. LIDEX [Concomitant]
  16. LOTREL [Concomitant]
  17. PREDNISONE TAB [Concomitant]
  18. NOVOLIN 70/30 [Concomitant]
  19. EPIVIR [Concomitant]
  20. PROGRAF [Concomitant]
  21. NORTRIPTYLINE HCL [Concomitant]
  22. METOPROLOL [Concomitant]
  23. LYRICA [Concomitant]
  24. ASPIRIN [Concomitant]
  25. ELAVIL [Concomitant]
  26. CALTRATE [Concomitant]
  27. CELLCEPT [Concomitant]
  28. PHOSLO [Concomitant]

REACTIONS (31)
  - ANXIETY [None]
  - BONE PAIN [None]
  - DERMATOSIS [None]
  - EMOTIONAL DISTRESS [None]
  - ERYTHEMA [None]
  - GAIT DISTURBANCE [None]
  - GENERAL PHYSICAL HEALTH DETERIORATION [None]
  - GRANULOMA [None]
  - HYPOAESTHESIA [None]
  - INJURY [None]
  - JOINT RANGE OF MOTION DECREASED [None]
  - MOBILITY DECREASED [None]
  - MUSCULAR WEAKNESS [None]
  - NEPHROGENIC SYSTEMIC FIBROSIS [None]
  - OEDEMA PERIPHERAL [None]
  - PAIN [None]
  - PAIN IN EXTREMITY [None]
  - PEAU D'ORANGE [None]
  - POSTOPERATIVE RENAL FAILURE [None]
  - PRURITUS [None]
  - RASH [None]
  - RASH PAPULAR [None]
  - SKIN DISORDER [None]
  - SKIN EROSION [None]
  - SKIN FIBROSIS [None]
  - SKIN HYPERPIGMENTATION [None]
  - SKIN HYPERTROPHY [None]
  - SKIN INDURATION [None]
  - SKIN LESION [None]
  - SKIN PLAQUE [None]
  - SWELLING [None]
